FAERS Safety Report 21959294 (Version 1)
Quarter: 2023Q1

REPORT INFORMATION
  Report Type: Spontaneous
  Country: US (occurrence: None)
  Receive Date: 20230203
  Receipt Date: 20230203
  Transmission Date: 20230417
  Serious: Yes (Hospitalization)
  Sender: FDA-Public Use
  Company Number: None

PATIENT
  Sex: Female

DRUGS (2)
  1. OPSUMIT [Suspect]
     Active Substance: MACITENTAN
     Indication: Pulmonary arterial hypertension
     Dosage: FREQUENCY : DAILY;?
     Route: 048
     Dates: start: 20220509
  2. UPTRAVI [Suspect]
     Active Substance: SELEXIPAG

REACTIONS (6)
  - Pneumonia [None]
  - Illness [None]
  - Nausea [None]
  - Vomiting [None]
  - Diarrhoea [None]
  - Therapy change [None]
